FAERS Safety Report 5230980-6 (Version None)
Quarter: 2007Q1

REPORT INFORMATION
  Report Type: 
  Country: None (occurrence: None)
  Receive Date: 20070206
  Receipt Date: 20070126
  Transmission Date: 20070707
  Serious: Yes (Other)
  Sender: FDA-Public Use
  Company Number: FR-GILEAD-2006-0009864

PATIENT
  Sex: Male
  Weight: 100 kg

DRUGS (9)
  1. HEPSERA [Suspect]
     Indication: HEPATITIS B
     Route: 048
     Dates: start: 20040101
  2. LEVOTHYROXINE SODIUM [Concomitant]
     Indication: HYPOTHYROIDISM
     Route: 048
     Dates: start: 20020101
  3. URBANYL [Concomitant]
     Indication: DEPRESSION
     Dates: start: 20030101
  4. TERCIAN [Concomitant]
     Indication: DEPRESSION
     Route: 048
     Dates: start: 20030101
  5. FRACTAL [Concomitant]
     Route: 048
  6. ENDOTHELON [Concomitant]
     Route: 048
  7. ZYLORIC [Concomitant]
     Indication: HYPERURICAEMIA
     Route: 048
  8. ANAFRANIL [Concomitant]
     Indication: DEPRESSION
  9. LIPANTHYL [Concomitant]
     Indication: DYSLIPIDAEMIA

REACTIONS (2)
  - RENAL FAILURE [None]
  - RENAL TUBULAR DISORDER [None]
